FAERS Safety Report 23483852 (Version 1)
Quarter: 2024Q1

REPORT INFORMATION
  Report Type: Spontaneous
  Country: US (occurrence: US)
  Receive Date: 20240205
  Receipt Date: 20240205
  Transmission Date: 20240410
  Serious: No
  Sender: FDA-Public Use
  Company Number: US-BAUSCH-BL-2024-001246

PATIENT
  Age: 60 Year
  Sex: Male

DRUGS (1)
  1. DILTIAZEM [Suspect]
     Active Substance: DILTIAZEM
     Indication: Product used for unknown indication
     Route: 065
     Dates: start: 202312

REACTIONS (2)
  - Fatigue [Unknown]
  - Dyspnoea [Unknown]
